FAERS Safety Report 5452155-8 (Version None)
Quarter: 2007Q3

REPORT INFORMATION
  Report Type: 
  Country: None (occurrence: None)
  Receive Date: 20070914
  Receipt Date: 20070910
  Transmission Date: 20080115
  Serious: Yes (Hospitalization)
  Sender: FDA-Public Use
  Company Number: PHEH2007US12161

PATIENT
  Sex: Male

DRUGS (2)
  1. LAMISIL [Suspect]
     Indication: ONYCHOMYCOSIS
     Route: 048
     Dates: start: 20060101
  2. LAMISIL [Suspect]
     Route: 048
     Dates: start: 20070621

REACTIONS (8)
  - EXPIRED DRUG ADMINISTERED [None]
  - HEADACHE [None]
  - LIVER FUNCTION TEST ABNORMAL [None]
  - ONYCHALGIA [None]
  - ONYCHOMYCOSIS [None]
  - PROSTATE CANCER [None]
  - PROSTATIC OPERATION [None]
  - ROTATOR CUFF REPAIR [None]
